FAERS Safety Report 5644668-0 (Version None)
Quarter: 2008Q1

REPORT INFORMATION
  Report Type: 
  Country: None (occurrence: None)
  Receive Date: 20080229
  Receipt Date: 20070515
  Transmission Date: 20080703
  Serious: No
  Sender: FDA-Public Use
  Company Number: A0651391A

PATIENT
  Age: 31 Year
  Sex: Female

DRUGS (2)
  1. VALTREX [Suspect]
     Indication: GENITAL HERPES
     Dosage: 500MG PER DAY
     Route: 048
     Dates: start: 20070501
  2. ZOLOFT [Concomitant]

REACTIONS (3)
  - HEAT RASH [None]
  - PHOTODERMATOSIS [None]
  - RASH [None]
